FAERS Safety Report 6000566-4 (Version None)
Quarter: 2008Q4

REPORT INFORMATION
  Report Type: 
  Country: None (occurrence: None)
  Receive Date: 20081212
  Receipt Date: 20080618
  Transmission Date: 20090506
  Serious: Yes (Other)
  Sender: FDA-Public Use
  Company Number: 08-000981

PATIENT
  Age: 47 Year
  Sex: Female
  Weight: 66.2 kg

DRUGS (1)
  1. FEMHRT [Suspect]
     Indication: MENOPAUSAL SYMPTOMS
     Dosage: 1MG/5MCG, QD, ORAL
     Route: 048
     Dates: start: 20080502, end: 20080612

REACTIONS (1)
  - BLINDNESS [None]
